FAERS Safety Report 5704333-8 (Version None)
Quarter: 2008Q2

REPORT INFORMATION
  Report Type: 
  Country: None (occurrence: None)
  Receive Date: 20080409
  Receipt Date: 20080402
  Transmission Date: 20081010
  Serious: Yes (Life-Threatening, Hospitalization)
  Sender: FDA-Public Use
  Company Number: TPG2008A00418

PATIENT
  Age: 50 Year
  Sex: Male

DRUGS (12)
  1. ACTOS [Suspect]
     Indication: TYPE 2 DIABETES MELLITUS
     Dosage: 45 MG PER ORAL : 30 MG PER ORAL : PER ORAL
     Route: 048
     Dates: start: 20070701, end: 20071029
  2. ACTOS [Suspect]
     Indication: TYPE 2 DIABETES MELLITUS
     Dosage: 45 MG PER ORAL : 30 MG PER ORAL : PER ORAL
     Route: 048
     Dates: start: 20071030, end: 20071217
  3. COAPROVEL  (HYDROCHLOROTHIAZIDE, IRBESARTAN) [Concomitant]
  4. FAST-ACTING INSULIN (INSULINS AND ANALOGUES, FAST-ACTING) [Concomitant]
  5. LONG-ACTING INSULIN (INSULINS AND ANALOGUES, LONG-ACTING) [Concomitant]
  6. METFORMIN HCL [Concomitant]
  7. HYDROHCLOROTHIAZIDE (HYDROCHLOROTHIAZIDE) [Concomitant]
  8. SERUMLIPIDREDUCING AGENTS (SERUMLIPIDREDUCING AGENTS) [Concomitant]
  9. BETA BLOCKING AGENTS (BETA BLOCKING AGENTS) [Concomitant]
  10. ANTITHROMBOTIC AGENTS (ANTITHROMBOTIC AGENTS) [Concomitant]
  11. AMLODIPINE [Concomitant]
  12. DOXAZOSIN (DOXAZOSIN) [Concomitant]

REACTIONS (2)
  - RESPIRATORY FAILURE [None]
  - WEIGHT INCREASED [None]
